FAERS Safety Report 7705935-X (Version None)
Quarter: 2011Q3

REPORT INFORMATION
  Report Type: 
  Country: None (occurrence: None)
  Receive Date: 20110824
  Receipt Date: 20110822
  Transmission Date: 20111222
  Serious: Yes (Other)
  Sender: FDA-Public Use
  Company Number: JP-PFIZER INC-2011194067

PATIENT
  Sex: Female

DRUGS (2)
  1. ZOLOFT [Suspect]
     Dosage: 25 MG DAILY
  2. ALPRAZOLAM [Suspect]
     Indication: ATRIAL FIBRILLATION
     Dosage: 1.2 MG DAILY

REACTIONS (5)
  - VISION BLURRED [None]
  - HEADACHE [None]
  - VISUAL ACUITY REDUCED [None]
  - SENSATION OF HEAVINESS [None]
  - DIPLOPIA [None]
